FAERS Safety Report 5034025-2 (Version None)
Quarter: 2006Q2

REPORT INFORMATION
  Report Type: 
  Country: None (occurrence: None)
  Receive Date: 20060626
  Receipt Date: 20060616
  Transmission Date: 20061013
  Serious: Yes (Death)
  Sender: FDA-Public Use
  Company Number: US-JNJFOC-20060603713

PATIENT
  Sex: Male
  Weight: 88.45 kg

DRUGS (2)
  1. CONCERTA [Suspect]
     Indication: ATTENTION DEFICIT/HYPERACTIVITY DISORDER
     Route: 048
  2. CREATINE SUPPLEMENT [Concomitant]
     Route: 048

REACTIONS (4)
  - ANOREXIA [None]
  - COMPLETED SUICIDE [None]
  - ELECTROCARDIOGRAM ABNORMAL [None]
  - INSOMNIA [None]
